FAERS Safety Report 18128492 (Version 1)
Quarter: 2020Q3

REPORT INFORMATION
  Report Type: Report from Study
  Country: CA (occurrence: CA)
  Receive Date: 20200810
  Receipt Date: 20200810
  Transmission Date: 20201103
  Serious: Yes (Other)
  Sender: FDA-Public Use
  Company Number: CA-SA-2020SA205911

PATIENT

DRUGS (4)
  1. OMEGA 3 [FISH OIL] [Concomitant]
     Active Substance: FISH OIL
     Route: 065
  2. GINSENG NOS [Concomitant]
     Active Substance: HERBALS
     Route: 065
  3. GINKO BILOBA [GINKGO BILOBA] [Concomitant]
     Route: 065
  4. ALEMTUZUMAB [Suspect]
     Active Substance: ALEMTUZUMAB
     Indication: RELAPSING-REMITTING MULTIPLE SCLEROSIS
     Dosage: 12 MG, QD
     Route: 041
     Dates: start: 20191125, end: 20191127

REACTIONS (1)
  - Immunodeficiency [Not Recovered/Not Resolved]
